FAERS Safety Report 4801120-X (Version None)
Quarter: 2005Q4

REPORT INFORMATION
  Report Type: 
  Country: None (occurrence: None)
  Receive Date: 20051017
  Receipt Date: 20051005
  Transmission Date: 20060501
  Serious: Yes (Disabling)
  Sender: FDA-Public Use
  Company Number: 2005AP05260

PATIENT
  Age: 67 Year
  Sex: Female

DRUGS (7)
  1. OMEPRAZOLE [Suspect]
     Indication: REFLUX OESOPHAGITIS
     Route: 048
  2. SOLANAX [Concomitant]
     Route: 048
  3. MARZULENE S [Concomitant]
     Route: 048
  4. LORAMET [Concomitant]
     Route: 048
  5. HALCION [Concomitant]
     Route: 048
  6. ALESION [Concomitant]
     Route: 048
  7. THEO-DUR [Concomitant]
     Route: 048

REACTIONS (2)
  - RETINAL HAEMORRHAGE [None]
  - VISUAL ACUITY REDUCED [None]
